FAERS Safety Report 18415888 (Version 1)
Quarter: 2020Q4

REPORT INFORMATION
  Report Type: Spontaneous
  Country: JP (occurrence: JP)
  Receive Date: 20201022
  Receipt Date: 20201022
  Transmission Date: 20210114
  Serious: Yes (Death, Other)
  Sender: FDA-Public Use
  Company Number: JP-TEVA-2020-JP-1841399

PATIENT
  Age: 79 Year
  Sex: Male

DRUGS (1)
  1. BENDAMUSTINE HYDROCHLORIDE. [Suspect]
     Active Substance: BENDAMUSTINE HYDROCHLORIDE
     Indication: MANTLE CELL LYMPHOMA STAGE III
     Dosage: (ONCE DAILY)
     Route: 042

REACTIONS (3)
  - Cerebral haemorrhage [Fatal]
  - CD4 lymphocytes decreased [Unknown]
  - Prescribed underdose [Unknown]
